FAERS Safety Report 8854415 (Version 2)
Quarter: 2013Q1

REPORT INFORMATION
  Report Type: Spontaneous
  Country: US (occurrence: US)
  Receive Date: 20121023
  Receipt Date: 20130110
  Transmission Date: 20140127
  Serious: Yes (Disabling)
  Sender: FDA-Public Use
  Company Number: US-ASTRAZENECA-2012SE77893

PATIENT
  Age: 52 Year
  Sex: Male

DRUGS (1)
  1. RHINOCORT AQUA [Suspect]
     Route: 045

REACTIONS (3)
  - Musculoskeletal disorder [Unknown]
  - Dyspnoea [Unknown]
  - Intentional drug misuse [Unknown]
